FAERS Safety Report 7591014-1 (Version None)
Quarter: 2011Q3

REPORT INFORMATION
  Report Type: 
  Country: None (occurrence: None)
  Receive Date: 20110705
  Receipt Date: 20110630
  Transmission Date: 20111222
  Serious: Yes (Death)
  Sender: FDA-Public Use
  Company Number: US-GILEAD-2011-0040806

PATIENT
  Sex: Male
  Weight: 56.523 kg

DRUGS (2)
  1. LETAIRIS [Suspect]
     Indication: PULMONARY HYPERTENSION
     Route: 048
     Dates: start: 20100612, end: 20110501
  2. LETAIRIS [Suspect]
     Indication: RENAL FAILURE CHRONIC

REACTIONS (1)
  - RENAL FAILURE CHRONIC [None]
